FAERS Safety Report 4900855-8 (Version None)
Quarter: 2006Q1

REPORT INFORMATION
  Report Type: 
  Country: None (occurrence: None)
  Receive Date: 20060113
  Receipt Date: 20051012
  Transmission Date: 20060701
  Serious: No
  Sender: FDA-Public Use
  Company Number: 2005SP002673

PATIENT
  Age: 52 Year
  Sex: Female
  Weight: 73.4827 kg

DRUGS (3)
  1. LUNESTA [Suspect]
     Dosage: 2 MG; HS; ORAL
     Route: 048
     Dates: start: 20050531, end: 20050816
  2. ACTONEL [Concomitant]
  3. QUININE [Concomitant]

REACTIONS (4)
  - FATIGUE [None]
  - MENORRHAGIA [None]
  - MUSCLE SPASMS [None]
  - PELVIC DISCOMFORT [None]
